FAERS Safety Report 5141982-2 (Version None)
Quarter: 2006Q4

REPORT INFORMATION
  Report Type: 
  Country: None (occurrence: None)
  Receive Date: 20061102
  Receipt Date: 20061026
  Transmission Date: 20070319
  Serious: Yes (Other)
  Sender: FDA-Public Use
  Company Number: US-ROXANE LABORATORIES, INC-2006-DE-05690GD

PATIENT

DRUGS (1)
  1. MORPHINE [Suspect]
     Indication: PROCEDURAL PAIN
     Dosage: 1-MG BOLUS, 5-MIN LOCKOUT INTERVAL; UP TO 10 DOSES/HOUR (FOR UP TO 72 HOURS)
     Route: 042

REACTIONS (11)
  - ANAEMIA [None]
  - CONSTIPATION [None]
  - DIZZINESS [None]
  - HEADACHE [None]
  - HYPOTENSION [None]
  - HYPOXIA [None]
  - NAUSEA [None]
  - PRURITUS [None]
  - PYREXIA [None]
  - RESPIRATORY DEPRESSION [None]
  - VOMITING [None]
